FAERS Safety Report 9866900 (Version 1)
Quarter: 2014Q1

REPORT INFORMATION
  Report Type: Spontaneous
  Country: US (occurrence: None)
  Receive Date: 20140203
  Receipt Date: 20140203
  Transmission Date: 20141002
  Serious: Yes (Life-Threatening, Hospitalization)
  Sender: FDA-Public Use
  Company Number: None

PATIENT
  Age: 13 Year
  Sex: Female
  Weight: 52.16 kg

DRUGS (1)
  1. DOXYCYCLINE [Suspect]
     Indication: ACNE
     Dosage: HALF A PILL ONCE DAILY ONCE DAILY TAKEN BY MOUTH
     Route: 048
     Dates: start: 20130926, end: 20140131

REACTIONS (3)
  - Self injurious behaviour [None]
  - Laceration [None]
  - Suicidal ideation [None]
